FAERS Safety Report 5903050-9 (Version None)
Quarter: 2008Q3

REPORT INFORMATION
  Report Type: 
  Country: None (occurrence: None)
  Receive Date: 20080930
  Receipt Date: 20080919
  Transmission Date: 20090109
  Serious: Yes (Hospitalization)
  Sender: FDA-Public Use
  Company Number: GB-ROCHE-587123

PATIENT
  Sex: Female

DRUGS (4)
  1. ORLISTAT [Suspect]
     Indication: OBESITY
     Route: 048
     Dates: start: 20080121
  2. VENTOLIN [Concomitant]
     Indication: ASTHMA
     Dosage: 2 PUMPS 2X DAILY
     Route: 055
     Dates: start: 19780101
  3. BECOTIDE [Concomitant]
     Indication: ASTHMA
     Dosage: 2 PUMPS 2X DAILY
     Route: 055
     Dates: start: 19780101
  4. FUCIBET [Concomitant]
     Indication: ECZEMA
     Route: 061
     Dates: start: 20030101

REACTIONS (2)
  - CELLULITIS [None]
  - PSORIASIS [None]
